FAERS Safety Report 9114769 (Version 1)
Quarter: 2013Q1

REPORT INFORMATION
  Report Type: Spontaneous
  Country: US (occurrence: None)
  Receive Date: 20130129
  Receipt Date: 20130129
  Transmission Date: 20140127
  Serious: No
  Sender: FDA-Public Use
  Company Number: AUR-APL-2013-00875

PATIENT
  Age: 57 Year
  Sex: Female

DRUGS (3)
  1. CETIRIZINE (CENTIRIZINE) [Suspect]
     Indication: URTICARIA CHRONIC
  2. FEXOFENADINE [Concomitant]
  3. RANITIDINE (RANITIDINE) [Concomitant]

REACTIONS (7)
  - Hepatotoxicity [None]
  - Fatigue [None]
  - Abdominal pain [None]
  - Diarrhoea [None]
  - Headache [None]
  - Chromaturia [None]
  - Hepatitis acute [None]
